FAERS Safety Report 8499168-X (Version None)
Quarter: 2012Q2

REPORT INFORMATION
  Report Type: 
  Country: None (occurrence: None)
  Receive Date: 20120405
  Receipt Date: 20100625
  Transmission Date: 20120825
  Serious: Yes (Hospitalization)
  Sender: FDA-Public Use
  Company Number: PHHY2010US42355

PATIENT
  Age: 90 Year
  Sex: Female
  Weight: 118 kg

DRUGS (1)
  1. RECLAST [Suspect]
     Dosage: 5 MG, 1/YEAR, INFUSION
     Dates: start: 20100617

REACTIONS (1)
  - VOMITING [None]
